FAERS Safety Report 9814561 (Version 1)
Quarter: 2014Q1

REPORT INFORMATION
  Report Type: Spontaneous
  Country: US (occurrence: US)
  Receive Date: 20140113
  Receipt Date: 20140113
  Transmission Date: 20141002
  Serious: Yes (Life-Threatening, Hospitalization, Disabling, Other)
  Sender: FDA-Public Use
  Company Number: US-ABBVIE-14P-163-1187767-00

PATIENT
  Age: 60 Year
  Sex: Female

DRUGS (13)
  1. DIVALPROEX SODIUM [Suspect]
     Indication: PRODUCT USED FOR UNKNOWN INDICATION
     Dosage: INCREASED TO 500 MG DAILY
  2. LAMICTAL [Interacting]
     Indication: PARTIAL SEIZURES
     Dosage: EXTENDED RELEASE
     Route: 048
  3. LAMICTAL [Interacting]
     Dosage: EXTENDED RELEASE
     Route: 048
  4. LAMICTAL [Interacting]
     Dosage: EXTENDED RELEASE
     Route: 048
  5. ZONEGRAN [Interacting]
     Indication: PRODUCT USED FOR UNKNOWN INDICATION
     Dosage: UP TO 400 MG DAILY, CURRENT DOSE 300 MG
     Dates: start: 2012
  6. CIPROFLOXACIN HCL [Suspect]
     Indication: URINARY TRACT INFECTION
  7. BACTRIM [Suspect]
     Indication: URINARY TRACT INFECTION
  8. CALCIUM [Concomitant]
     Indication: PRODUCT USED FOR UNKNOWN INDICATION
  9. CELEPHONRING [Concomitant]
     Indication: PRODUCT USED FOR UNKNOWN INDICATION
  10. VITAMIN D NOS [Concomitant]
     Indication: PRODUCT USED FOR UNKNOWN INDICATION
  11. VITAMIN B [Concomitant]
     Indication: PRODUCT USED FOR UNKNOWN INDICATION
  12. CELEXA [Concomitant]
     Indication: PRODUCT USED FOR UNKNOWN INDICATION
  13. TRAZODONE [Concomitant]
     Indication: PRODUCT USED FOR UNKNOWN INDICATION

REACTIONS (19)
  - Fall [Recovered/Resolved]
  - Head injury [Recovered/Resolved]
  - Convulsion [Unknown]
  - Overdose [Recovered/Resolved]
  - Drug interaction [Unknown]
  - Overdose [Recovered/Resolved]
  - Loss of consciousness [Recovered/Resolved]
  - Visual impairment [Recovered/Resolved]
  - Tremor [Recovered/Resolved]
  - Sinusitis [Recovered/Resolved]
  - Nausea [Recovered/Resolved]
  - Vomiting [Recovered/Resolved]
  - Muscular weakness [Recovered/Resolved]
  - Fatigue [Recovered/Resolved]
  - Blood glucose decreased [Recovered/Resolved]
  - Dizziness [Recovered/Resolved]
  - Feeling abnormal [Recovered/Resolved]
  - Drug level fluctuating [Unknown]
  - Paralysis [Recovered/Resolved]
